FAERS Safety Report 4719331-0 (Version None)
Quarter: 2005Q3

REPORT INFORMATION
  Report Type: 
  Country: None (occurrence: None)
  Receive Date: 20050721
  Receipt Date: 20050711
  Transmission Date: 20060218
  Serious: Yes (Life-Threatening)
  Sender: FDA-Public Use
  Company Number: GB-BOEHRINGER INGELHEIM PHARMACEUTICALS, INC.-2005-UK-01247UK

PATIENT
  Age: 66 Year
  Sex: Male
  Weight: 92 kg

DRUGS (15)
  1. SPIRIVA [Suspect]
     Indication: CHRONIC OBSTRUCTIVE PULMONARY DISEASE
     Dosage: 1 CAPSULE DAILY
     Route: 055
     Dates: start: 20050614
  2. CO-AMOXICLAV [Concomitant]
     Dosage: 500/125 TDS
     Route: 048
  3. PREDNISOLONE [Concomitant]
     Dosage: 5MG 8 X DAILY
     Route: 048
  4. CETIRIZINE HCL [Concomitant]
     Route: 048
  5. MOMETASONE FUROATE [Concomitant]
     Dosage: 0.1% APPLY ONCE DAILY
     Route: 061
  6. LOPERAMIDE HYDROCHLORIDE [Concomitant]
     Dosage: 2 IMMEDIATELY THEN 1 AFTER EACH LOOSE STOOL
  7. OXYTETRACYCLINE [Concomitant]
     Dosage: 2 X 250MG 4 X DAILY
     Route: 048
  8. BETAMETHASONE VALERATE [Concomitant]
     Dosage: 0.1% APPLY DAILY
     Route: 061
  9. MAGNESIUM TRISILICATE [Concomitant]
     Dosage: 10ML AS REQUIRED
  10. THEOPHYLLINE [Concomitant]
     Dosage: 400MG 2 ON
     Route: 048
  11. IPRATROPIUM BROMIDE [Concomitant]
     Dosage: 2 PUFFS QDS PRN
  12. LANSOPRAZOLE [Concomitant]
     Route: 048
  13. SERETIDE EVOHALER [Concomitant]
     Dosage: 2 PUFFS BD
     Route: 055
  14. SALBUTAMOL [Concomitant]
     Dosage: 2 PUFFS QDS
     Route: 055
  15. ALLOPURINOL [Concomitant]
     Route: 048

REACTIONS (2)
  - COUGH [None]
  - SYNCOPE [None]
